FAERS Safety Report 9802212 (Version 3)
Quarter: 2014Q1

REPORT INFORMATION
  Report Type: Spontaneous
  Country: NO (occurrence: NO)
  Receive Date: 20140107
  Receipt Date: 20140204
  Transmission Date: 20141002
  Serious: Yes (Death, Other)
  Sender: FDA-Public Use
  Company Number: NO-WATSON-2013-24033

PATIENT
  Age: 17 Year
  Sex: Female

DRUGS (10)
  1. DOXORUBICIN (UNKNOWN) [Suspect]
     Indication: METASTASES TO LUNG
     Dosage: 450 MG/M2, TOTAL
     Route: 065
  2. DOXORUBICIN (UNKNOWN) [Suspect]
     Indication: OSTEOSARCOMA
     Dosage: UNK
     Route: 065
  3. ETOPOSIDE (UNKNOWN) [Suspect]
     Indication: OSTEOSARCOMA
     Dosage: 2000 MG/M2, TOTAL
     Route: 065
  4. ETOPOSIDE (UNKNOWN) [Suspect]
     Indication: METASTASES TO LUNG
     Dosage: UNK
     Route: 065
  5. METHOTREXATE (UNKNOWN) [Suspect]
     Indication: METASTASES TO LUNG
     Dosage: 24000 MG/M2, TOTAL
     Route: 065
  6. METHOTREXATE (UNKNOWN) [Suspect]
     Indication: OSTEOSARCOMA
     Dosage: UNK
     Route: 065
  7. CISPLATIN (UNKNOWN) [Suspect]
     Indication: OSTEOSARCOMA
     Dosage: 580 MG/M2, TOTAL
     Route: 065
  8. CISPLATIN (UNKNOWN) [Suspect]
     Indication: METASTASES TO LUNG
     Dosage: UNK
     Route: 065
  9. IFOSFAMIDE [Suspect]
     Indication: OSTEOSARCOMA
     Dosage: 77200 MG/M2, TOTAL
     Route: 065
  10. IFOSFAMIDE [Suspect]
     Indication: METASTASES TO LUNG
     Dosage: UNK
     Route: 065

REACTIONS (4)
  - Pneumonitis [Fatal]
  - Febrile neutropenia [Unknown]
  - Thrombocytopenia [Unknown]
  - Rash [Unknown]
